FAERS Safety Report 5194056-9 (Version None)
Quarter: 2006Q4

REPORT INFORMATION
  Report Type: 
  Country: None (occurrence: None)
  Receive Date: 20061222
  Receipt Date: 20061211
  Transmission Date: 20070319
  Serious: Yes (Death, Hospitalization)
  Sender: FDA-Public Use
  Company Number: 2006001988

PATIENT
  Age: 61 Year
  Sex: Male
  Weight: 56.7 kg

DRUGS (10)
  1. ERLOTINIB (TABLET) [Suspect]
     Indication: NON-SMALL CELL LUNG CANCER
     Dosage: 150 MG (QD), ORAL
     Route: 048
     Dates: start: 20060309, end: 20060326
  2. VELCADE [Suspect]
     Indication: NON-SMALL CELL LUNG CANCER
     Dosage: 1.6 MG, (DAY1, 8 Q3W), INTRAVENOUS
     Route: 042
     Dates: start: 20060309, end: 20060316
  3. WARFARIN SODIUM [Suspect]
  4. NEXIUM [Concomitant]
  5. LIPITOR [Concomitant]
  6. COLACE (DOCUSATE SODIUM) [Concomitant]
  7. ZESTRIL [Concomitant]
  8. DILANTIN [Concomitant]
  9. RANITIDINE [Concomitant]
  10. TEGRETOL [Concomitant]

REACTIONS (20)
  - ANAEMIA [None]
  - ASTHENIA [None]
  - BLOOD BICARBONATE INCREASED [None]
  - BLOOD CALCIUM DECREASED [None]
  - BLOOD CREATININE INCREASED [None]
  - BLOOD GLUCOSE INCREASED [None]
  - BLOOD POTASSIUM INCREASED [None]
  - BLOOD PRESSURE SYSTOLIC DECREASED [None]
  - BLOOD SODIUM DECREASED [None]
  - BLOOD UREA INCREASED [None]
  - BLOOD UREA NITROGEN/CREATININE RATIO INCREASED [None]
  - BREATH SOUNDS ABNORMAL [None]
  - CEREBRAL HYPOPERFUSION [None]
  - COAGULOPATHY [None]
  - DECREASED APPETITE [None]
  - HYPOXIA [None]
  - INTERNATIONAL NORMALISED RATIO INCREASED [None]
  - MENTAL STATUS CHANGES [None]
  - PLEURAL EFFUSION [None]
  - PROTHROMBIN TIME PROLONGED [None]
